FAERS Safety Report 6166068-X (Version None)
Quarter: 2009Q2

REPORT INFORMATION
  Report Type: 
  Country: None (occurrence: None)
  Receive Date: 20090422
  Receipt Date: 20090408
  Transmission Date: 20091009
  Serious: Yes (Hospitalization)
  Sender: FDA-Public Use
  Company Number: 8038617

PATIENT
  Age: 40 Year
  Sex: Female
  Weight: 63.18 kg

DRUGS (2)
  1. CIMZIA [Suspect]
     Dosage: 400 MG 1/2W SC
     Route: 058
     Dates: end: 20080101
  2. CIMZIA [Suspect]
     Dosage: 400 MG /M SC
     Route: 058
     Dates: end: 20080101

REACTIONS (4)
  - ASTHENIA [None]
  - BLOOD POTASSIUM DECREASED [None]
  - CHILLS [None]
  - INFLUENZA LIKE ILLNESS [None]
